FAERS Safety Report 8779852 (Version 1)
Quarter: 2012Q4

REPORT INFORMATION
  Report Type: 
  Country: IE (occurrence: IE)
  Receive Date: 20120912
  Receipt Date: 20120912
  Transmission Date: 20130627
  Serious: Yes (Death)
  Sender: FDA-Public Use
  Company Number: IE-AMGEN-IRLSP2012056280

PATIENT
  Age: 58 Year
  Sex: Male

DRUGS (2)
  1. NEULASTA [Suspect]
     Indication: CHEMOTHERAPY
     Dosage: 6 mg, q3wk
     Route: 058
     Dates: start: 20120817
  2. ANTINEOPLASTIC AGENTS [Concomitant]

REACTIONS (1)
  - Death [Fatal]
